FAERS Safety Report 25655150 (Version 2)
Quarter: 2025Q3

REPORT INFORMATION
  Report Type: Spontaneous
  Country: US (occurrence: US)
  Receive Date: 20250807
  Receipt Date: 20250930
  Transmission Date: 20251020
  Serious: No
  Sender: PFIZER
  Company Number: US-PFIZER INC-PV202500093637

PATIENT

DRUGS (2)
  1. GENOTROPIN [Suspect]
     Active Substance: SOMATROPIN
     Dosage: 1 MG, ALTERNATE DAY, 1 MG UNDER THE SKIN 3 DAYS PER WEEK ALTERNATING WITH 1.2 MG 3 DAYS PER WEEK
     Route: 058
  2. GENOTROPIN [Suspect]
     Active Substance: SOMATROPIN
     Dosage: 1.2 MG, ALTERNATE DAY, 1 MG UNDER THE SKIN 3 DAYS PER WEEK ALTERNATING WITH 1.2 MG 3 DAYS PER WEEK

REACTIONS (2)
  - Device leakage [Unknown]
  - Device issue [Unknown]

NARRATIVE: CASE EVENT DATE: 20250422
